FAERS Safety Report 6588750-2 (Version None)
Quarter: 2010Q1

REPORT INFORMATION
  Report Type: 
  Country: None (occurrence: None)
  Receive Date: 20100218
  Receipt Date: 20100212
  Transmission Date: 20100710
  Serious: Yes (Hospitalization)
  Sender: FDA-Public Use
  Company Number: PHHO2010DE02491

PATIENT
  Sex: Male
  Weight: 68 kg

DRUGS (3)
  1. CERTICAN [Suspect]
     Indication: RENAL TRANSPLANT
     Dosage: 1.5 MG, UNK
     Route: 048
     Dates: end: 20091124
  2. SANDIMMUNE [Suspect]
     Indication: RENAL TRANSPLANT
     Dosage: UNK
     Dates: end: 20091124
  3. URBASON [Suspect]
     Indication: RENAL TRANSPLANT

REACTIONS (2)
  - GLOMERULONEPHRITIS [None]
  - TRANSPLANT REJECTION [None]
